FAERS Safety Report 21645180 (Version 1)
Quarter: 2022Q4

REPORT INFORMATION
  Report Type: Report from Study
  Country: IT (occurrence: IT)
  Receive Date: 20221126
  Receipt Date: 20221126
  Transmission Date: 20230113
  Serious: Yes (Other)
  Sender: FDA-Public Use
  Company Number: None

PATIENT
  Age: 12 Year
  Sex: Female
  Weight: 70 kg

DRUGS (4)
  1. VINCRISTINE [Suspect]
     Active Substance: VINCRISTINE
     Indication: Acute lymphocytic leukaemia
     Dosage: VINCRISTINA TEVA ITALY, VINCRISTINE 2 MG DAY 20 AND 27 /10/2022,, DURATION : 7 DAYS, INJECTION/INFUS
     Route: 065
     Dates: start: 20221020, end: 20221027
  2. DAUNORUBICIN HYDROCHLORIDE [Suspect]
     Active Substance: DAUNORUBICIN HYDROCHLORIDE
     Indication: Acute lymphocytic leukaemia
     Dosage: 20 AND 27 OCTOBER 49 MG, DURATION : 7 DAYS, INJECTION/INFUSION
     Dates: start: 20221020, end: 20221027
  3. ONCASPAR [Suspect]
     Active Substance: PEGASPARGASE
     Indication: Acute lymphocytic leukaemia
     Dosage: INJECTION/INFUSION, 3750 IU, THERAPY END DATE : NASK
     Dates: start: 20221017
  4. PREDNISONE [Concomitant]
     Active Substance: PREDNISONE
     Indication: Acute lymphocytic leukaemia
     Dosage: 100 MG
     Dates: start: 20221004

REACTIONS (2)
  - Pancytopenia [Unknown]
  - Liver disorder [Not Recovered/Not Resolved]

NARRATIVE: CASE EVENT DATE: 20221031
